FAERS Safety Report 6199271-3 (Version None)
Quarter: 2009Q2

REPORT INFORMATION
  Report Type: 
  Country: None (occurrence: None)
  Receive Date: 20090519
  Receipt Date: 20090519
  Transmission Date: 20091009
  Serious: Yes (Life-Threatening, Hospitalization)
  Sender: FDA-Public Use
  Company Number: None

PATIENT
  Age: 63 Year
  Sex: Female
  Weight: 74.8435 kg

DRUGS (2)
  1. ABILIFY [Suspect]
     Indication: DEPRESSION
     Dosage: QD PO 2 WEEKS APPX
     Route: 048
  2. SEROQUEL [Suspect]
     Indication: DEPRESSION
     Dosage: SEROQUEL QD PO ONCE
     Route: 048

REACTIONS (13)
  - CHEST DISCOMFORT [None]
  - DIAPHRAGMATIC DISORDER [None]
  - DIZZINESS [None]
  - DYSKINESIA [None]
  - DYSSTASIA [None]
  - DYSTONIA [None]
  - EXTRAPYRAMIDAL DISORDER [None]
  - FALL [None]
  - MENTAL DISORDER [None]
  - MUSCLE SPASMS [None]
  - PANIC ATTACK [None]
  - RESPIRATORY DISORDER [None]
  - SOMNOLENCE [None]
